FAERS Safety Report 5845697-4 (Version None)
Quarter: 2008Q3

REPORT INFORMATION
  Report Type: 
  Country: None (occurrence: None)
  Receive Date: 20080814
  Receipt Date: 20080806
  Transmission Date: 20090109
  Serious: Yes (Other)
  Sender: FDA-Public Use
  Company Number: PHHY2008CA17347

PATIENT

DRUGS (1)
  1. CO-DIOVAN T32564+ [Suspect]
     Dosage: 160/25 MG DAILY
     Route: 048

REACTIONS (2)
  - BLOOD CREATININE INCREASED [None]
  - MICROALBUMINURIA [None]
